FAERS Safety Report 6610926-6 (Version None)
Quarter: 2010Q1

REPORT INFORMATION
  Report Type: 
  Country: None (occurrence: None)
  Receive Date: 20100222
  Receipt Date: 20100203
  Transmission Date: 20100710
  Serious: Yes (Hospitalization)
  Sender: FDA-Public Use
  Company Number: IMP_04901_2010

PATIENT
  Sex: Female

DRUGS (1)
  1. DIVALPROEX SODIUM [Suspect]
     Indication: DRUG USE FOR UNKNOWN INDICATION
     Dosage: (DF)
     Dates: start: 20090221

REACTIONS (18)
  - ALOPECIA [None]
  - CHILLS [None]
  - FACE OEDEMA [None]
  - HEADACHE [None]
  - HYPERTENSION [None]
  - MEDICATION RESIDUE [None]
  - MUSCLE SPASMS [None]
  - NEUROPATHY PERIPHERAL [None]
  - OEDEMA PERIPHERAL [None]
  - PAIN [None]
  - PRODUCT QUALITY ISSUE [None]
  - PRODUCT SUBSTITUTION ISSUE [None]
  - PYREXIA [None]
  - TREMOR [None]
  - TYPE 1 DIABETES MELLITUS [None]
  - VERTIGO [None]
  - VISION BLURRED [None]
  - WEIGHT INCREASED [None]
